FAERS Safety Report 4384309-6 (Version None)
Quarter: 2004Q2

REPORT INFORMATION
  Report Type: 
  Country: None (occurrence: None)
  Receive Date: 20040621
  Receipt Date: 20040614
  Transmission Date: 20050107
  Serious: Yes (Other)
  Sender: FDA-Public Use
  Company Number: 2004-06-0806

PATIENT
  Age: 79 Year
  Sex: Male
  Weight: 77 kg

DRUGS (8)
  1. NEOCLARITYN TABLETS 'LIKE CLARINEX' (DESLORATADINE) [Suspect]
     Indication: RHINITIS
     Dosage: 5MG/QD ORAL
     Route: 048
     Dates: start: 20020903, end: 20040413
  2. FLIXOTIDE [Concomitant]
  3. TILDIEM [Concomitant]
  4. NICORANDIL [Concomitant]
  5. ISOSORBIDE MONONITRATE [Concomitant]
  6. COMBIVENT INHALATION [Concomitant]
  7. ZOTON [Concomitant]
  8. GLYCERYL TRINITRATE ^LALEUF^ [Concomitant]

REACTIONS (1)
  - ELECTROCARDIOGRAM QT PROLONGED [None]
